FAERS Safety Report 15936302 (Version 1)
Quarter: 2019Q1

REPORT INFORMATION
  Report Type: Spontaneous
  Country: FR (occurrence: FR)
  Receive Date: 20190208
  Receipt Date: 20190208
  Transmission Date: 20190417
  Serious: Yes (Other)
  Sender: FDA-Public Use
  Company Number: FR-GLAXOSMITHKLINE-FR2019GSK022226

PATIENT
  Age: 45 Year

DRUGS (2)
  1. NIQUITIN [Suspect]
     Active Substance: NICOTINE
     Dosage: UNK 14 MG/24HR
     Route: 065
  2. NIQUITIN [Suspect]
     Active Substance: NICOTINE
     Indication: SMOKING CESSATION THERAPY
     Dosage: UNK 21 MG/24 HR
     Route: 065

REACTIONS (1)
  - Angioedema [Unknown]
